FAERS Safety Report 11616383 (Version 2)
Quarter: 2016Q1

REPORT INFORMATION
  Report Type: Report from Study
  Country: JP (occurrence: JP)
  Receive Date: 20151009
  Receipt Date: 20160113
  Transmission Date: 20160525
  Serious: Yes (Hospitalization)
  Sender: FDA-Public Use
  Company Number: JP-SA-2015SA152191

PATIENT
  Sex: Male
  Weight: 70 kg

DRUGS (24)
  1. MEROPEN [Suspect]
     Active Substance: MEROPENEM
     Route: 065
  2. CALONAL [Concomitant]
     Active Substance: ACETAMINOPHEN
     Indication: PYREXIA
     Route: 048
  3. CEFEPIME [Concomitant]
     Active Substance: CEFEPIME HYDROCHLORIDE
     Indication: GINGIVITIS
     Dates: start: 20130419
  4. THYMOGLOBULINE [Suspect]
     Active Substance: LAPINE T-LYMPHOCYTE IMMUNE GLOBULIN
     Indication: APLASTIC ANAEMIA
     Dosage: ADMINISTERED OVER 24 HOURS
     Route: 042
     Dates: start: 20130425, end: 20130425
  5. THYMOGLOBULINE [Suspect]
     Active Substance: LAPINE T-LYMPHOCYTE IMMUNE GLOBULIN
     Indication: APLASTIC ANAEMIA
     Route: 042
     Dates: start: 20130428, end: 20130428
  6. GRAN [Suspect]
     Active Substance: FILGRASTIM
     Dosage: SYRINGE
     Route: 065
     Dates: start: 20130421, end: 20130724
  7. DROLEPTAN [Suspect]
     Active Substance: DROPERIDOL
     Indication: NAUSEA
     Route: 065
     Dates: start: 20130611, end: 20130616
  8. MYCOSYST [Concomitant]
     Active Substance: FLUCONAZOLE
     Indication: INFECTION PROPHYLAXIS
     Route: 048
     Dates: start: 20130425
  9. THYMOGLOBULINE [Suspect]
     Active Substance: LAPINE T-LYMPHOCYTE IMMUNE GLOBULIN
     Indication: APLASTIC ANAEMIA
     Route: 042
     Dates: start: 20130426, end: 20130426
  10. FAMOTIDINE. [Concomitant]
     Active Substance: FAMOTIDINE
     Indication: PROPHYLAXIS
     Dates: start: 20130528, end: 20130620
  11. FOLIAMIN [Concomitant]
     Active Substance: FOLIC ACID
     Route: 048
     Dates: start: 20130902, end: 20131017
  12. THYMOGLOBULINE [Suspect]
     Active Substance: LAPINE T-LYMPHOCYTE IMMUNE GLOBULIN
     Indication: APLASTIC ANAEMIA
     Dosage: 160 MG + 75 MG WAS ADMINISTERED OVER 20 HOURS
     Route: 042
     Dates: start: 20130429, end: 20130429
  13. NEORAL [Suspect]
     Active Substance: CYCLOSPORINE
     Indication: APLASTIC ANAEMIA
     Route: 065
     Dates: start: 20130426
  14. PRIMOBOLAN-DEPOT [Concomitant]
     Active Substance: METHENOLONE ENANTHATE
     Route: 048
     Dates: start: 20130628
  15. SAXIZON [Concomitant]
     Active Substance: HYDROCORTISONE SODIUM SUCCINATE
  16. THYMOGLOBULINE [Suspect]
     Active Substance: LAPINE T-LYMPHOCYTE IMMUNE GLOBULIN
     Indication: APLASTIC ANAEMIA
     Route: 042
     Dates: start: 20130427, end: 20130427
  17. THYMOGLOBULINE [Suspect]
     Active Substance: LAPINE T-LYMPHOCYTE IMMUNE GLOBULIN
     Indication: APLASTIC ANAEMIA
     Route: 042
     Dates: start: 20130425, end: 20130425
  18. FEBURIC [Concomitant]
     Active Substance: FEBUXOSTAT
     Indication: HYPERURICAEMIA
     Route: 048
     Dates: start: 20130708
  19. TAKEPRON OD [Suspect]
     Active Substance: LANSOPRAZOLE
     Indication: PROPHYLAXIS
     Route: 048
     Dates: start: 20130419, end: 20130828
  20. CALONAL [Concomitant]
     Active Substance: ACETAMINOPHEN
     Indication: ALLERGY PROPHYLAXIS
     Route: 048
  21. PREDONINE [Concomitant]
     Active Substance: PREDNISOLONE\PREDNISOLONE ACETATE\PREDNISOLONE SODIUM SUCCINATE
     Indication: ALLERGY PROPHYLAXIS
     Route: 048
     Dates: start: 20130422, end: 20130528
  22. NEXIUM [Concomitant]
     Active Substance: ESOMEPRAZOLE MAGNESIUM
     Indication: PROPHYLAXIS
     Route: 048
     Dates: start: 20130829
  23. SOL-MELCORT [Concomitant]
     Active Substance: METHYLPREDNISOLONE SODIUM SUCCINATE
     Indication: PROPHYLAXIS
     Dates: start: 20130425, end: 20130504
  24. EXJADE [Concomitant]
     Active Substance: DEFERASIROX
     Indication: PROPHYLAXIS
     Dosage: DISPERSIBLE TABLETS
     Dates: start: 20130628

REACTIONS (11)
  - Akathisia [Recovering/Resolving]
  - Hypomagnesaemia [Recovering/Resolving]
  - Hyperuricaemia [Recovering/Resolving]
  - Device related infection [Recovering/Resolving]
  - Renal impairment [Not Recovered/Not Resolved]
  - Pyrexia [Recovered/Resolved]
  - Nausea [Recovering/Resolving]
  - Insomnia [Unknown]
  - Iron overload [Recovering/Resolving]
  - Petechiae [Unknown]
  - Rash [Recovering/Resolving]

NARRATIVE: CASE EVENT DATE: 20130425
